FAERS Safety Report 8516824-5 (Version None)
Quarter: 2012Q3

REPORT INFORMATION
  Report Type: 
  Country: None (occurrence: None)
  Receive Date: 20120706
  Receipt Date: 20120621
  Transmission Date: 20120928
  Serious: Yes (Hospitalization)
  Sender: FDA-Public Use
  Company Number: TPA2012A03880

PATIENT
  Age: 74 Year
  Sex: Female

DRUGS (7)
  1. LASIX [Concomitant]
  2. AMLODIN OD (AMLODIPINE BESILATE) [Concomitant]
  3. FEBURIC (FEBUXOSTAT) [Suspect]
     Indication: HYPERURICAEMIA
     Dosage: 10 MG (10 MG, 1 IN 1 D) PER ORAL
     Route: 048
     Dates: start: 20120524, end: 20120530
  4. FEBURIC (FEBUXOSTAT) [Suspect]
     Indication: HEPATIC FUNCTION ABNORMAL
     Dosage: 10 MG (10 MG, 1 IN 1 D) PER ORAL
     Route: 048
     Dates: start: 20120524, end: 20120530
  5. MIYA BM (CLOSTRIDIUM BUTYRICUM) [Concomitant]
  6. LIVACT (LEUCINE, VALINE, ISOLEUCINE) [Concomitant]
  7. ALDACTONE [Concomitant]

REACTIONS (2)
  - WHITE BLOOD CELL COUNT DECREASED [None]
  - AGRANULOCYTOSIS [None]
